FAERS Safety Report 9752348 (Version 2)
Quarter: 2014Q1

REPORT INFORMATION
  Report Type: Spontaneous
  Country: US (occurrence: US)
  Receive Date: 20131213
  Receipt Date: 20140102
  Transmission Date: 20141002
  Serious: No
  Sender: FDA-Public Use
  Company Number: US-PFIZER INC-2013356278

PATIENT
  Age: 80 Year
  Sex: Male
  Weight: 69.84 kg

DRUGS (3)
  1. LYRICA [Suspect]
     Indication: NEUROPATHY PERIPHERAL
     Dosage: 75 MG, 2X/DAY
     Dates: start: 201311, end: 2013
  2. LYRICA [Suspect]
     Dosage: 150 MG, 2X/DAY
     Dates: start: 2013
  3. LIPITOR [Concomitant]
     Indication: BLOOD CHOLESTEROL INCREASED
     Dosage: 80 MG, DAILY

REACTIONS (1)
  - Drug effect incomplete [Unknown]
